FAERS Safety Report 4892590-X (Version None)
Quarter: 2006Q1

REPORT INFORMATION
  Report Type: 
  Country: None (occurrence: None)
  Receive Date: 20060126
  Receipt Date: 20060104
  Transmission Date: 20060701
  Serious: Yes (Death)
  Sender: FDA-Public Use
  Company Number: CH-ROCHE-432821

PATIENT
  Sex: Male

DRUGS (2)
  1. ROACCUTAN [Suspect]
     Indication: ACNE
     Route: 048
  2. ROACCUTAN [Suspect]
     Route: 061

REACTIONS (1)
  - COMPLETED SUICIDE [None]
